FAERS Safety Report 9000456 (Version 2)
Quarter: 2013Q1

REPORT INFORMATION
  Report Type: Spontaneous
  Country: US (occurrence: None)
  Receive Date: 20121221
  Receipt Date: 20130107
  Transmission Date: 20140127
  Serious: Yes (Hospitalization)
  Sender: FDA-Public Use
  Company Number: USA/USA/12/0027112

PATIENT
  Age: 13 Year
  Sex: Male

DRUGS (4)
  1. ZIPRASIDONE [Suspect]
     Indication: PRODUCT USED FOR UNKNOWN INDICATION
     Route: 048
     Dates: start: 20121127, end: 20121202
  2. DIVALPROEX SODIUM DELAYED RELEASE (VALPROATE SEMISODIUM) [Concomitant]
  3. FLUOXETINE [Concomitant]
  4. ATOMOXETINE (ATOMOXETINE) [Concomitant]

REACTIONS (4)
  - Muscle rigidity [None]
  - Dystonia [None]
  - Extrapyramidal disorder [None]
  - Tongue disorder [None]
